FAERS Safety Report 17798571 (Version 1)
Quarter: 2020Q2

REPORT INFORMATION
  Report Type: Spontaneous
  Country: US (occurrence: US)
  Receive Date: 20200518
  Receipt Date: 20200518
  Transmission Date: 20200714
  Serious: Yes (Hospitalization)
  Sender: FDA-Public Use
  Company Number: US-PFIZER INC-2020195049

PATIENT
  Age: 64 Year
  Sex: Female

DRUGS (1)
  1. XELJANZ [Suspect]
     Active Substance: TOFACITINIB CITRATE
     Indication: RHEUMATOID ARTHRITIS
     Dosage: 5 MG, 2X/DAY
     Route: 048
     Dates: start: 201911

REACTIONS (6)
  - Communication disorder [Unknown]
  - Cerebral vascular occlusion [Unknown]
  - Product dose omission [Unknown]
  - Retching [Unknown]
  - Headache [Not Recovered/Not Resolved]
  - Intracranial aneurysm [Unknown]
